FAERS Safety Report 24973649 (Version 2)
Quarter: 2025Q1

REPORT INFORMATION
  Report Type: Spontaneous
  Country: US (occurrence: US)
  Receive Date: 20250217
  Receipt Date: 20250304
  Transmission Date: 20250408
  Serious: No
  Sender: ABBVIE
  Company Number: US-ABBVIE-6132619

PATIENT
  Age: 51 Year
  Sex: Female

DRUGS (1)
  1. CREON [Suspect]
     Active Substance: PANCRELIPASE AMYLASE\PANCRELIPASE LIPASE\PANCRELIPASE PROTEASE
     Indication: Cystic fibrosis
     Route: 048
     Dates: start: 2010, end: 202501

REACTIONS (9)
  - Dyspepsia [Unknown]
  - Dehydration [Unknown]
  - Diarrhoea [Unknown]
  - Product size issue [Unknown]
  - Drug ineffective [Unknown]
  - Weight decreased [Unknown]
  - Fatigue [Unknown]
  - Product solubility abnormal [Unknown]
  - Product coating issue [Not Recovered/Not Resolved]

NARRATIVE: CASE EVENT DATE: 20240101
